FAERS Safety Report 9452533 (Version 2)
Quarter: 2013Q3

REPORT INFORMATION
  Report Type: Spontaneous
  Country: US (occurrence: US)
  Receive Date: 20130812
  Receipt Date: 20130822
  Transmission Date: 20140515
  Serious: No
  Sender: FDA-Public Use
  Company Number: US-PFIZER INC-2013181158

PATIENT
  Age: 86 Year
  Sex: Female
  Weight: 54.42 kg

DRUGS (3)
  1. ADVIL PM [Suspect]
     Indication: INSOMNIA
     Dosage: UNK, ONCE A DAY
     Route: 048
     Dates: start: 20130603, end: 20130605
  2. ADVIL PM [Suspect]
     Dosage: UNK, AS NEEDED
     Route: 048
     Dates: start: 2013, end: 201308
  3. ADVIL [Concomitant]
     Dosage: UNK

REACTIONS (5)
  - Off label use [Unknown]
  - Drug ineffective for unapproved indication [Unknown]
  - Poor quality sleep [Unknown]
  - Insomnia [Unknown]
  - Condition aggravated [Unknown]
